FAERS Safety Report 8483622 (Version 2)
Quarter: 2012Q4

REPORT INFORMATION
  Report Type: 
  Country: US (occurrence: US)
  Receive Date: 20120329
  Receipt Date: 20121022
  Transmission Date: 20130627
  Serious: Yes (Hospitalization, Other)
  Sender: FDA-Public Use
  Company Number: US-US-EMD SERONO, INC.-7121291

PATIENT
  Sex: Female

DRUGS (10)
  1. REBIF [Suspect]
     Indication: MULTIPLE SCLEROSIS
     Route: 058
     Dates: start: 20091130, end: 201203
  2. UNSPECIFIED MEDICATIONS [Concomitant]
     Indication: PRODUCT USED FOR UNKNOWN INDICATION
  3. ZANANIDINE [Concomitant]
     Indication: MUSCLE RELAXANT THERAPY
  4. ZOLOFT [Concomitant]
     Indication: DEPRESSION
  5. GABAPENTIN [Concomitant]
     Indication: MULTIPLE SCLEROSIS
  6. GABAPENTIN [Concomitant]
     Indication: PAIN
  7. OXYBUTIN [Concomitant]
     Indication: BLADDER DISORDER
  8. HIGH CHOLESTEROL MEDICATION [Concomitant]
     Indication: BLOOD CHOLESTEROL INCREASED
  9. CLARITIN [Concomitant]
     Indication: HYPERSENSITIVITY
  10. VITAMINS [Concomitant]
     Indication: PRODUCT USED FOR UNKNOWN INDICATION

REACTIONS (3)
  - Renal failure [Unknown]
  - Clostridium difficile infection [Unknown]
  - Urinary tract infection [Unknown]
